FAERS Safety Report 4655274-9 (Version None)
Quarter: 2005Q2

REPORT INFORMATION
  Report Type: 
  Country: None (occurrence: None)
  Receive Date: 20050401
  Receipt Date: 20050204
  Transmission Date: 20051028
  Serious: No
  Sender: FDA-Public Use
  Company Number: SU-2005-003093

PATIENT
  Age: 45 Year
  Sex: Male
  Weight: 102.9665 kg

DRUGS (3)
  1. BENICAR HCT [Suspect]
     Indication: HYPERTENSION
     Dosage: 40.125 MG QD PO
     Route: 048
     Dates: start: 20031112, end: 20040106
  2. COUMADIN [Concomitant]
  3. FLECAINIDE ACETATE [Concomitant]

REACTIONS (1)
  - GOUT [None]
